FAERS Safety Report 10209347 (Version 12)
Quarter: 2014Q4

REPORT INFORMATION
  Report Type: Report from Study
  Country: TR (occurrence: TR)
  Receive Date: 20140531
  Receipt Date: 20141117
  Transmission Date: 20150528
  Serious: Yes (Hospitalization)
  Sender: FDA-Public Use
  Company Number: TR-ROCHE-1410610

PATIENT
  Age: 46 Year
  Sex: Female
  Weight: 47.5 kg

DRUGS (48)
  1. FAMOTIDIN [Concomitant]
     Dosage: SINGLE DOSE
     Route: 058
     Dates: start: 20140527, end: 20140527
  2. FAMOTIDIN [Concomitant]
     Dosage: SINGLE DOSE
     Route: 042
     Dates: start: 20141013, end: 20141013
  3. AVIL [Concomitant]
     Active Substance: PHENIRAMINE
     Dosage: SINGLE DOSE
     Route: 058
     Dates: start: 20140527, end: 20140527
  4. DEKORT [Concomitant]
     Active Substance: DEXAMETHASONE
     Indication: PROPHYLAXIS
     Dosage: SINGLE DOSE
     Route: 042
     Dates: start: 20140527, end: 20140527
  5. DEKORT [Concomitant]
     Active Substance: DEXAMETHASONE
     Dosage: SINGLE DOSE
     Route: 058
     Dates: start: 20140819, end: 20140819
  6. DEKORT [Concomitant]
     Active Substance: DEXAMETHASONE
     Route: 058
     Dates: start: 20140527, end: 20140527
  7. OBINUTUZUMAB [Suspect]
     Active Substance: OBINUTUZUMAB
     Indication: CHRONIC LYMPHOCYTIC LEUKAEMIA
     Dosage: C1D1
     Route: 042
     Dates: start: 20140526, end: 20140526
  8. KYTRIL [Concomitant]
     Active Substance: GRANISETRON HYDROCHLORIDE
     Route: 042
     Dates: start: 20140721, end: 20140721
  9. KYTRIL [Concomitant]
     Active Substance: GRANISETRON HYDROCHLORIDE
     Route: 042
     Dates: start: 20140915, end: 20140915
  10. OBINUTUZUMAB [Suspect]
     Active Substance: OBINUTUZUMAB
     Dosage: C1D2?THIS WAS THE LAST DOSE PRIOR TO EVENT
     Route: 042
     Dates: start: 20140527, end: 20140527
  11. PAROL (TURKEY) [Concomitant]
     Indication: PROPHYLAXIS
     Route: 048
     Dates: start: 20140526, end: 20140526
  12. PAROL (TURKEY) [Concomitant]
     Dosage: SINGLE DOSE
     Route: 048
     Dates: start: 20140610, end: 20140610
  13. FAMOTIDIN [Concomitant]
     Dosage: SINGLE DOSE
     Route: 042
     Dates: start: 20140721, end: 20140721
  14. KYTRIL [Concomitant]
     Active Substance: GRANISETRON HYDROCHLORIDE
     Dosage: SINGLE DOSE
     Route: 042
     Dates: start: 20141013, end: 20141013
  15. DEKORT [Concomitant]
     Active Substance: DEXAMETHASONE
     Dosage: SINGLE DOSE
     Route: 058
     Dates: start: 20140527, end: 20140527
  16. DEKORT [Concomitant]
     Active Substance: DEXAMETHASONE
     Dosage: SINGLE DOSE
     Route: 042
     Dates: start: 20140915, end: 20140915
  17. FAMOTIDIN [Concomitant]
     Indication: PROPHYLAXIS
     Dosage: SINGLE DOSE
     Route: 058
     Dates: start: 20140526, end: 20140526
  18. FAMOTIDIN [Concomitant]
     Dosage: SINGLE DOSE
     Route: 045
     Dates: start: 20140610, end: 20140610
  19. FAMOTIDIN [Concomitant]
     Dosage: SINGLE DOSE
     Route: 042
     Dates: start: 20140915, end: 20140915
  20. AVIL [Concomitant]
     Active Substance: PHENIRAMINE
     Dosage: SINGLE DOSE
     Route: 042
     Dates: start: 20140623, end: 20140623
  21. AVIL [Concomitant]
     Active Substance: PHENIRAMINE
     Dosage: SINGLE DOSE
     Route: 042
     Dates: start: 20141013, end: 20141013
  22. PAROL (TURKEY) [Concomitant]
     Dosage: SINGLE DOSE
     Route: 048
     Dates: start: 20140623, end: 20140623
  23. PAROL (TURKEY) [Concomitant]
     Dosage: SINGLE DOSE
     Route: 048
     Dates: start: 20140721, end: 20140721
  24. KYTRIL [Concomitant]
     Active Substance: GRANISETRON HYDROCHLORIDE
     Indication: PROPHYLAXIS
     Route: 058
     Dates: start: 20140526, end: 20140526
  25. KYTRIL [Concomitant]
     Active Substance: GRANISETRON HYDROCHLORIDE
     Route: 058
     Dates: start: 20140527, end: 20140527
  26. KYTRIL [Concomitant]
     Active Substance: GRANISETRON HYDROCHLORIDE
     Route: 042
     Dates: start: 20140623, end: 20140623
  27. AVIL [Concomitant]
     Active Substance: PHENIRAMINE
     Indication: PROPHYLAXIS
     Dosage: SINGLE DOSE
     Route: 058
     Dates: start: 20140526, end: 20140526
  28. AVIL [Concomitant]
     Active Substance: PHENIRAMINE
     Dosage: SINGLE DOSE
     Route: 058
     Dates: start: 20140819, end: 20140819
  29. AVIL [Concomitant]
     Active Substance: PHENIRAMINE
     Dosage: SINGLE DOSE
     Route: 042
     Dates: start: 20140819, end: 20140819
  30. DEKORT [Concomitant]
     Active Substance: DEXAMETHASONE
     Dosage: SINGLE DOSE
     Route: 042
     Dates: start: 20140623, end: 20140623
  31. DEKORT [Concomitant]
     Active Substance: DEXAMETHASONE
     Dosage: SINGLE DOSE
     Route: 042
     Dates: start: 20140721, end: 20140721
  32. DEKORT [Concomitant]
     Active Substance: DEXAMETHASONE
     Dosage: SINGLE DOSE
     Route: 042
     Dates: start: 20141013, end: 20141013
  33. NEUPOGEN [Concomitant]
     Active Substance: FILGRASTIM
     Indication: PROPHYLAXIS
     Dosage: 48MIU
     Route: 058
     Dates: start: 20140915, end: 20140916
  34. NEUPOGEN [Concomitant]
     Active Substance: FILGRASTIM
     Dosage: 48MIU
     Route: 058
     Dates: start: 20141013, end: 20141013
  35. FAMOTIDIN [Concomitant]
     Dosage: SINGLE DOSE
     Route: 042
     Dates: start: 20140623, end: 20140623
  36. FAMOTIDIN [Concomitant]
     Dosage: SINGLE DOSE
     Route: 042
     Dates: start: 20140819, end: 20140819
  37. DEKORT [Concomitant]
     Active Substance: DEXAMETHASONE
     Dosage: SINGLE DOSE
     Route: 058
     Dates: start: 20140526, end: 20140526
  38. OBINUTUZUMAB [Suspect]
     Active Substance: OBINUTUZUMAB
     Route: 042
  39. KYTRIL [Concomitant]
     Active Substance: GRANISETRON HYDROCHLORIDE
     Route: 042
     Dates: start: 20140819, end: 20140819
  40. AVIL [Concomitant]
     Active Substance: PHENIRAMINE
     Dosage: SINGLE DOSE
     Route: 042
     Dates: start: 20140527, end: 20140527
  41. AVIL [Concomitant]
     Active Substance: PHENIRAMINE
     Dosage: SINGLE DOSE
     Route: 042
     Dates: start: 20140610, end: 20140610
  42. AVIL [Concomitant]
     Active Substance: PHENIRAMINE
     Dosage: SINGLE DOSE
     Route: 042
     Dates: start: 20140915, end: 20140915
  43. DEKORT [Concomitant]
     Active Substance: DEXAMETHASONE
     Dosage: SINGLE DOSE
     Route: 042
     Dates: start: 20140610, end: 20140610
  44. DEKORT [Concomitant]
     Active Substance: DEXAMETHASONE
     Dosage: SINGLE DOSE
     Route: 042
     Dates: start: 20140819, end: 20140819
  45. PAROL (TURKEY) [Concomitant]
     Dosage: SINGLE DOSE
     Route: 048
     Dates: start: 20140819, end: 20140819
  46. PAROL (TURKEY) [Concomitant]
     Dosage: SINGLE DOSE
     Route: 048
     Dates: start: 20141013, end: 20141013
  47. KYTRIL [Concomitant]
     Active Substance: GRANISETRON HYDROCHLORIDE
     Route: 042
     Dates: start: 20140610, end: 20140610
  48. PAROL (TURKEY) [Concomitant]
     Route: 048
     Dates: start: 20140527, end: 20140527

REACTIONS (1)
  - Febrile neutropenia [Recovered/Resolved]

NARRATIVE: CASE EVENT DATE: 20140528
